FAERS Safety Report 25040670 (Version 1)
Quarter: 2025Q1

REPORT INFORMATION
  Report Type: Spontaneous
  Country: US (occurrence: None)
  Receive Date: 20250304
  Receipt Date: 20250304
  Transmission Date: 20250409
  Serious: Yes (Hospitalization)
  Sender: FDA-CTU
  Company Number: None

PATIENT
  Sex: Male

DRUGS (10)
  1. LENALIDOMIDE [Suspect]
     Active Substance: LENALIDOMIDE
     Indication: Plasma cell myeloma
     Dates: start: 20241016
  2. ALLOPURINOL TAB 300MG [Concomitant]
  3. CALCIUM 600 TAB +D [Concomitant]
  4. CELEBREX CAP 200MG [Concomitant]
  5. DIGOXIN TAB 0.25MG [Concomitant]
  6. DILTIAZEM CAP 240MG ER [Concomitant]
  7. ENTRESTO TAB 97-103MG [Concomitant]
  8. METOPROL TAR TAB SOMG [Concomitant]
  9. MULTIVITAMIN TAB ADULTS [Concomitant]
  10. VENLAFAXINE TAB 75MG [Concomitant]

REACTIONS (3)
  - Cellulitis [None]
  - Infection [None]
  - Therapy interrupted [None]
